FAERS Safety Report 18967361 (Version 3)
Quarter: 2021Q2

REPORT INFORMATION
  Report Type: Other
  Country: IL (occurrence: IL)
  Receive Date: 20210303
  Receipt Date: 20210513
  Transmission Date: 20210717
  Serious: No
  Sender: FDA-Public Use
  Company Number: IL-ROCHE-2781900

PATIENT
  Age: 33 Year
  Sex: Female

DRUGS (2)
  1. OCREVUS [Suspect]
     Active Substance: OCRELIZUMAB
     Indication: RELAPSING-REMITTING MULTIPLE SCLEROSIS
     Route: 042
     Dates: start: 20201207
  2. ALECENSA [Suspect]
     Active Substance: ALECTINIB HYDROCHLORIDE
     Indication: NON-SMALL CELL LUNG CANCER
     Route: 048
     Dates: start: 2021

REACTIONS (3)
  - Coronavirus test positive [Unknown]
  - Cough [Unknown]
  - Oropharyngeal pain [Unknown]

NARRATIVE: CASE EVENT DATE: 20210224
